FAERS Safety Report 19816043 (Version 1)
Quarter: 2021Q3

REPORT INFORMATION
  Report Type: Spontaneous
  Country: US (occurrence: US)
  Receive Date: 20210909
  Receipt Date: 20210909
  Transmission Date: 20211014
  Serious: No
  Sender: FDA-Public Use
  Company Number: US-AGILE THERAPEUTICS, INC.-US-AGI-2021-000069

PATIENT

DRUGS (3)
  1. METFORMIN [Concomitant]
     Active Substance: METFORMIN HYDROCHLORIDE
     Indication: WEIGHT
     Dosage: 500 MILLIGRAM, QD
     Dates: start: 20210715
  2. CORLANOR [Concomitant]
     Active Substance: IVABRADINE HYDROCHLORIDE
     Indication: CARDIAC DYSFUNCTION
     Dosage: 5 MILLIGRAM, BID
     Dates: start: 2020
  3. TWIRLA [Suspect]
     Active Substance: ETHINYL ESTRADIOL\LEVONORGESTREL
     Indication: CONTRACEPTION
     Dosage: 120 MCG/DAY LEVONORGESTREL AND 30 MCG/DAY ETHINYL ESTRADIOL
     Route: 062
     Dates: start: 20210630

REACTIONS (1)
  - Product adhesion issue [Not Recovered/Not Resolved]

NARRATIVE: CASE EVENT DATE: 20210725
